FAERS Safety Report 12682327 (Version 1)
Quarter: 2016Q3

REPORT INFORMATION
  Report Type: Report from Study
  Country: US (occurrence: US)
  Receive Date: 20160824
  Receipt Date: 20160824
  Transmission Date: 20161109
  Serious: Yes (Other)
  Sender: FDA-Public Use
  Company Number: US-AMGEN-USASL2016110247

PATIENT
  Age: 69 Year
  Sex: Female

DRUGS (1)
  1. ENBREL [Suspect]
     Active Substance: ETANERCEPT
     Indication: PRODUCT USED FOR UNKNOWN INDICATION
     Dosage: UNK
     Route: 065

REACTIONS (10)
  - Nodule [Unknown]
  - Condition aggravated [Unknown]
  - Fatigue [Unknown]
  - Pain in extremity [Unknown]
  - Fibromyalgia [Unknown]
  - Breast cancer [Recovered/Resolved]
  - Eye operation [Unknown]
  - Blindness [Unknown]
  - Arthralgia [Unknown]
  - Musculoskeletal stiffness [Unknown]

NARRATIVE: CASE EVENT DATE: 2008
